FAERS Safety Report 18286150 (Version 1)
Quarter: 2020Q3

REPORT INFORMATION
  Report Type: Report from Study
  Country: BR (occurrence: BR)
  Receive Date: 20200919
  Receipt Date: 20200919
  Transmission Date: 20201103
  Serious: Yes (Other)
  Sender: FDA-Public Use
  Company Number: NVSC2020BR209694

PATIENT
  Sex: Female

DRUGS (1)
  1. ULTIBRO [Suspect]
     Active Substance: GLYCOPYRRONIUM\INDACATEROL
     Indication: DYSPNOEA
     Dosage: UNK, STARTED APRROXIMATELY 3 YEARS AGO
     Route: 065

REACTIONS (12)
  - Choking sensation [Unknown]
  - Hypersensitivity [Unknown]
  - Influenza like illness [Unknown]
  - Bronchitis [Unknown]
  - Perfume sensitivity [Unknown]
  - Sneezing [Unknown]
  - Asphyxia [Unknown]
  - Dust allergy [Unknown]
  - Allergy to chemicals [Unknown]
  - Asthma [Unknown]
  - Prescription drug used without a prescription [Unknown]
  - Mite allergy [Unknown]
